FAERS Safety Report 15261290 (Version 1)
Quarter: 2018Q3

REPORT INFORMATION
  Report Type: Spontaneous
  Country: US (occurrence: US)
  Receive Date: 20180809
  Receipt Date: 20180809
  Transmission Date: 20181010
  Serious: Yes (Death, Other)
  Sender: FDA-Public Use
  Company Number: US-SHIRE-US201830626

PATIENT
  Age: 77 Year

DRUGS (1)
  1. FIRAZYR [Suspect]
     Active Substance: ICATIBANT ACETATE
     Indication: HEREDITARY ANGIOEDEMA
     Dosage: 30 ML/ 3ML, AS REQ^D
     Route: 058
     Dates: start: 20140630, end: 20180806

REACTIONS (1)
  - Death [Fatal]

NARRATIVE: CASE EVENT DATE: 20180806
